FAERS Safety Report 10393017 (Version 1)
Quarter: 2014Q3

REPORT INFORMATION
  Report Type: Spontaneous
  Country: GB (occurrence: None)
  Receive Date: 20140815
  Receipt Date: 20140815
  Transmission Date: 20150326
  Serious: Yes (Death, Hospitalization)
  Sender: FDA-Public Use
  Company Number: GB-H14001-14-00358

PATIENT
  Age: 67 Year
  Sex: Male

DRUGS (3)
  1. CIPROFLOXACIN (CIPROFLOXACIN) (CIPROFLOXACIN) [Suspect]
     Active Substance: CIPROFLOXACIN
     Indication: PRODUCT USED FOR UNKNOWN INDICATION
     Dosage: UNKNOWN
  2. ESBRIET [Suspect]
     Active Substance: PIRFENIDONE
     Indication: IDIOPATHIC PULMONARY FIBROSIS
     Dosage: APPROXIMATELY 1800MG (1 DOSAGE FORMS, 3 IN 1D) ORAL
     Route: 048
     Dates: end: 20140716
  3. AMIODARONE [Suspect]
     Active Substance: AMIODARONE
     Indication: PRODUCT USED FOR UNKNOWN INDICATION
     Dosage: UNKNOWN

REACTIONS (8)
  - Nausea [None]
  - Urosepsis [None]
  - Dyspepsia [None]
  - Drug interaction [None]
  - Malaise [None]
  - Systemic inflammatory response syndrome [None]
  - Multi-organ failure [None]
  - Toxicity to various agents [None]

NARRATIVE: CASE EVENT DATE: 20140716
